FAERS Safety Report 7201399-3 (Version None)
Quarter: 2010Q4

REPORT INFORMATION
  Report Type: 
  Country: None (occurrence: None)
  Receive Date: 20101216
  Receipt Date: 20101202
  Transmission Date: 20110411
  Serious: Yes (Hospitalization)
  Sender: FDA-Public Use
  Company Number: 2010SP062742

PATIENT
  Age: 25 Year
  Sex: Female

DRUGS (2)
  1. AERIUS (DESLORATADINE /01398501/) [Suspect]
     Indication: COUGH
     Dosage: 5 MG
  2. AERIUS (DESLORATADINE /01398501/) [Suspect]
     Indication: NASAL CONGESTION
     Dosage: 5 MG

REACTIONS (3)
  - ABDOMINAL DISCOMFORT [None]
  - HYPERSENSITIVITY [None]
  - PSYCHOMOTOR HYPERACTIVITY [None]
